FAERS Safety Report 8472308-4 (Version None)
Quarter: 2012Q2

REPORT INFORMATION
  Report Type: 
  Country: None (occurrence: None)
  Receive Date: 20120627
  Receipt Date: 20120625
  Transmission Date: 20120825
  Serious: Yes (Other)
  Sender: FDA-Public Use
  Company Number: US-TEVA-345147USA

PATIENT
  Age: 47 Year
  Sex: Female

DRUGS (1)
  1. DEXTROAMPHETAMINE SULFATE [Suspect]
     Dosage: 30 MILLIGRAM;

REACTIONS (3)
  - PARAESTHESIA [None]
  - BALANCE DISORDER [None]
  - WITHDRAWAL SYNDROME [None]
